FAERS Safety Report 7285876-5 (Version None)
Quarter: 2011Q1

REPORT INFORMATION
  Report Type: 
  Country: None (occurrence: None)
  Receive Date: 20110128
  Receipt Date: 20110114
  Transmission Date: 20110831
  Serious: Yes (Hospitalization)
  Sender: FDA-Public Use
  Company Number: 2010P1003302

PATIENT
  Age: 54 Year
  Sex: Male
  Weight: 111.1313 kg

DRUGS (6)
  1. ATENOLOL [Concomitant]
  2. MULTI-VITAMINS [Concomitant]
  3. PRILOSEC OTC [Concomitant]
  4. COLCHICINE 0.6 MG TABLET [Suspect]
     Indication: GOUT
     Dosage: 0.6 MG, 2 IN 1 D, PER ORAL
     Route: 048
     Dates: start: 20081201
  5. DILTIAZEM [Concomitant]
  6. ALLOPURINOL [Concomitant]

REACTIONS (17)
  - CARCINOEMBRYONIC ANTIGEN INCREASED [None]
  - CONDITION AGGRAVATED [None]
  - DILATATION INTRAHEPATIC DUCT ACQUIRED [None]
  - ABDOMINAL PAIN [None]
  - WEIGHT DECREASED [None]
  - RENAL CYST [None]
  - CHOLANGITIS SCLEROSING [None]
  - WOUND DEHISCENCE [None]
  - ABDOMINAL PAIN UPPER [None]
  - BILE DUCT STENOSIS [None]
  - CHANGE OF BOWEL HABIT [None]
  - DIVERTICULUM INTESTINAL [None]
  - SPUTUM INCREASED [None]
  - ABDOMINAL HERNIA [None]
  - DYSPNOEA [None]
  - HYPERTENSION [None]
  - PERIDIVERTICULAR ABSCESS [None]
